FAERS Safety Report 10776537 (Version 1)
Quarter: 2015Q1

REPORT INFORMATION
  Report Type: Spontaneous
  Country: US (occurrence: None)
  Receive Date: 20150205
  Receipt Date: 20150205
  Transmission Date: 20150721
  Serious: Yes (Life-Threatening, Hospitalization, Disabling)
  Sender: FDA-Public Use
  Company Number: None

PATIENT
  Age: 84 Year
  Sex: Male
  Weight: 78.02 kg

DRUGS (9)
  1. PLAVIX [Concomitant]
     Active Substance: CLOPIDOGREL BISULFATE
  2. VITAMIN B12 [Concomitant]
     Active Substance: CYANOCOBALAMIN
  3. NORVASC [Suspect]
     Active Substance: AMLODIPINE BESYLATE
     Indication: BLOOD PRESSURE INCREASED
     Route: 048
  4. VITAMIN B1 [Concomitant]
     Active Substance: THIAMINE HYDROCHLORIDE
  5. COZAAR [Concomitant]
     Active Substance: LOSARTAN POTASSIUM
  6. SINGULAIR [Concomitant]
     Active Substance: MONTELUKAST SODIUM
  7. LASIX [Concomitant]
     Active Substance: FUROSEMIDE
  8. VITAMIN A [Concomitant]
     Active Substance: VITAMIN A
  9. VITAMIN C [Concomitant]
     Active Substance: ASCORBIC ACID

REACTIONS (9)
  - Peripheral coldness [None]
  - Cardiomyopathy [None]
  - Rhinitis allergic [None]
  - Cardiac failure congestive [None]
  - Unevaluable event [None]
  - Cranial nerve disorder [None]
  - Asthma [None]
  - Oedema peripheral [None]
  - Sleep apnoea syndrome [None]

NARRATIVE: CASE EVENT DATE: 201410
